FAERS Safety Report 20638917 (Version 2)
Quarter: 2022Q3

REPORT INFORMATION
  Report Type: Report from Study
  Country: IE (occurrence: IE)
  Receive Date: 20220325
  Receipt Date: 20220824
  Transmission Date: 20221027
  Serious: Yes (Death, Hospitalization, Disabling, Other)
  Sender: FDA-Public Use
  Company Number: IE-GENMAB-2020-00272

PATIENT
  Age: 48 Year
  Sex: Female
  Weight: 82 kg

DRUGS (69)
  1. TISOTUMAB VEDOTIN [Suspect]
     Active Substance: TISOTUMAB VEDOTIN
     Indication: Cervix cancer metastatic
     Dosage: 2 MILLIGRAM/KILOGRAM, 1Q3W
     Route: 041
     Dates: start: 20200107, end: 20200107
  2. PEMBROLIZUMAB [Suspect]
     Active Substance: PEMBROLIZUMAB
     Indication: Cervix cancer metastatic
     Dosage: 200 MILLIGRAM, 1Q3W
     Route: 041
     Dates: start: 20200107, end: 20200107
  3. CODEINE PHOSPHATE [Concomitant]
     Active Substance: CODEINE PHOSPHATE
     Dosage: 30 MILLIGRAM, PRN
     Route: 048
  4. ACETAMINOPHEN [Concomitant]
     Active Substance: ACETAMINOPHEN
     Indication: Pain
     Dosage: 1 GRAM, PRN
     Route: 048
     Dates: start: 20200120, end: 20200122
  5. ACETAMINOPHEN [Concomitant]
     Active Substance: ACETAMINOPHEN
     Dosage: 500 GRAM, PRN
     Route: 048
     Dates: start: 20200120, end: 20200122
  6. ACETAMINOPHEN [Concomitant]
     Active Substance: ACETAMINOPHEN
     Dosage: 500 MILLIGRAM, PRN
     Route: 048
  7. IRON [Concomitant]
     Active Substance: IRON
     Indication: Prophylaxis
     Dosage: 305 MILLIGRAM, QD
     Route: 048
  8. MIRTAZAPINE [Concomitant]
     Active Substance: MIRTAZAPINE
     Indication: Prophylaxis
     Dosage: 15 MILLIGRAM, QD
     Route: 048
  9. FOLIC ACID [Concomitant]
     Active Substance: FOLIC ACID
     Indication: Prophylaxis
     Dosage: 5 MILLIGRAM, QD
     Route: 048
  10. TEICOPLANIN [Concomitant]
     Active Substance: TEICOPLANIN
     Indication: Prophylaxis
     Dosage: 400 MILLIGRAM, QD
     Route: 042
     Dates: start: 20200106, end: 20200106
  11. HYPROMELLOSES [Concomitant]
     Active Substance: HYPROMELLOSES
     Indication: Prophylaxis
     Dosage: 1 DROP, 3 TO 5 TIMES DAILY
     Route: 047
     Dates: start: 20200107, end: 20200115
  12. HYPROMELLOSES [Concomitant]
     Active Substance: HYPROMELLOSES
     Dosage: 1 DROP, BID
     Route: 047
     Dates: start: 20200116, end: 20200118
  13. HYPROMELLOSES [Concomitant]
     Active Substance: HYPROMELLOSES
     Dosage: 1 DROP, QD
     Route: 047
     Dates: start: 20200119, end: 20200119
  14. HYPROMELLOSES [Concomitant]
     Active Substance: HYPROMELLOSES
     Dosage: 1 DROP, BID
     Route: 047
     Dates: start: 20200120, end: 20200121
  15. DEXAMETHASONE [Concomitant]
     Active Substance: DEXAMETHASONE
     Indication: Prophylaxis
     Dosage: 1 DROP, TID, BOTH EYES
     Route: 047
     Dates: start: 20200107, end: 20200109
  16. BRIMONIDINE [Concomitant]
     Active Substance: BRIMONIDINE TARTRATE
     Indication: Prophylaxis
     Dosage: 3 DROP, QD
     Route: 047
     Dates: start: 20200107, end: 20200107
  17. PREGABALIN [Concomitant]
     Active Substance: PREGABALIN
     Dosage: 150 MG, QD
     Route: 048
  18. SODIUM CHLORIDE [Concomitant]
     Active Substance: SODIUM CHLORIDE
     Indication: Hypokalaemia
     Dosage: 1 LITER, QD (ALONG WITH POTASSIUM CHLORIDE)
     Route: 065
     Dates: start: 20200115, end: 20200115
  19. SODIUM CHLORIDE [Concomitant]
     Active Substance: SODIUM CHLORIDE
     Dosage: 1 LITER, QD (ALONG WITH POTASSIUM CHLORIDE)
     Route: 065
     Dates: start: 20200116, end: 20200116
  20. SODIUM CHLORIDE [Concomitant]
     Active Substance: SODIUM CHLORIDE
     Dosage: 1 LITER, QD (ALONG WITH 40MMOL POTASSIUM PHOSPHATE)
     Route: 065
     Dates: start: 20200116, end: 20200116
  21. SODIUM CHLORIDE [Concomitant]
     Active Substance: SODIUM CHLORIDE
     Dosage: 1 LITER, QD (ALONG WITH 1 AMP POTASSIUM PHOSPHATE)
     Route: 065
     Dates: start: 20200118, end: 20200118
  22. SODIUM CHLORIDE [Concomitant]
     Active Substance: SODIUM CHLORIDE
     Dosage: 1 LITER, QD (ALONG WITH MAGNESIUM SULPHATE)
     Route: 065
     Dates: start: 20200119, end: 20200119
  23. SODIUM CHLORIDE [Concomitant]
     Active Substance: SODIUM CHLORIDE
     Dosage: 1 LITER, QD (ALONG WITH 1 AMP POTASSIUM PHOSPHATE)
     Route: 065
     Dates: start: 20200119, end: 20200119
  24. SODIUM CHLORIDE [Concomitant]
     Active Substance: SODIUM CHLORIDE
     Dosage: 1 LITER, QD (ALONG WITH 40 MMOL POTASSIUM CHLORIDE)
     Route: 065
     Dates: start: 20200120, end: 20200120
  25. POTASSIUM CHLORIDE [Concomitant]
     Active Substance: POTASSIUM CHLORIDE
     Indication: Hypokalaemia
     Dosage: 1 LITER, QD (ALONG WITH SALINE)
     Route: 065
     Dates: start: 20200115, end: 20200115
  26. POTASSIUM CHLORIDE [Concomitant]
     Active Substance: POTASSIUM CHLORIDE
     Indication: Prophylaxis
     Dosage: 1 LITER, QD (ALONG WITH SALINE)
     Route: 065
     Dates: start: 20200116, end: 20200116
  27. ALBUMIN HUMAN [Concomitant]
     Active Substance: ALBUMIN HUMAN
     Indication: Hypoalbuminaemia
     Dosage: 50 GRAM PER LITRE, QD
     Dates: start: 20200116, end: 20200116
  28. GENTAMICIN SULFATE [Concomitant]
     Active Substance: GENTAMICIN SULFATE
     Indication: Prophylaxis
     Dosage: 320 MILLIGRAM, QD
     Route: 065
     Dates: start: 20200116, end: 20200116
  29. PIPERACILLIN SODIUM\TAZOBACTAM SODIUM [Concomitant]
     Active Substance: PIPERACILLIN SODIUM\TAZOBACTAM SODIUM
     Indication: Prophylaxis
     Dosage: 4.5 GRAM, TID
     Route: 065
     Dates: start: 20200116, end: 20200121
  30. ALLOPURINOL [Concomitant]
     Active Substance: ALLOPURINOL
     Indication: Prophylaxis
     Dosage: 100 MILLIGRAM, QD
     Route: 065
     Dates: start: 20200116, end: 20200120
  31. CYCLIZINE [Concomitant]
     Active Substance: CYCLIZINE
     Indication: Prophylaxis
     Dosage: 50 MILLIGRAM, TID
     Dates: start: 20200116, end: 20200120
  32. CYCLIZINE [Concomitant]
     Active Substance: CYCLIZINE
     Dosage: 20 MILLIGRAM, QD
     Route: 065
     Dates: start: 20200120, end: 20200120
  33. PANTOPRAZOLE [Concomitant]
     Active Substance: PANTOPRAZOLE
     Indication: Prophylaxis
     Dosage: 40 MILLIGRAM, QD
     Route: 065
     Dates: start: 20200116, end: 20200121
  34. MYCOSTATIN [Concomitant]
     Active Substance: NYSTATIN
     Indication: Prophylaxis
     Dosage: 1 MILLILITER, TID
     Route: 065
     Dates: start: 20200116, end: 20200116
  35. MYCOSTATIN [Concomitant]
     Active Substance: NYSTATIN
     Dosage: 1 MILLILITER, TID
     Route: 065
     Dates: start: 20200116, end: 20200116
  36. MYCOSTATIN [Concomitant]
     Active Substance: NYSTATIN
     Dosage: 1 MILLILITER, QID
     Route: 065
     Dates: start: 20200117, end: 20200117
  37. MYCOSTATIN [Concomitant]
     Active Substance: NYSTATIN
     Dosage: 1 MILLILITER, TID
     Route: 065
     Dates: start: 20200118, end: 20200118
  38. MAGNESIUM SULFATE [Concomitant]
     Active Substance: MAGNESIUM SULFATE
     Indication: Hypomagnesaemia
     Dosage: 100 MILLILITER, QD
     Route: 065
     Dates: start: 20200116, end: 20200116
  39. MAGNESIUM SULFATE [Concomitant]
     Active Substance: MAGNESIUM SULFATE
     Dosage: 2 GRAM, QD
     Route: 065
     Dates: start: 20200117, end: 20200117
  40. MAGNESIUM SULFATE [Concomitant]
     Active Substance: MAGNESIUM SULFATE
     Dosage: 100 MILLILITER, QD
     Route: 065
     Dates: start: 20200119, end: 20200119
  41. POTASSIUM PHOSPHATES [Concomitant]
     Active Substance: POTASSIUM PHOSPHATE, DIBASIC\POTASSIUM PHOSPHATE, MONOBASIC
     Indication: Prophylaxis
     Dosage: LITER, QD (ALONG WITH NORMAL SALINE)
     Route: 065
     Dates: start: 20200116, end: 20200116
  42. POTASSIUM PHOSPHATES [Concomitant]
     Active Substance: POTASSIUM PHOSPHATE, DIBASIC\POTASSIUM PHOSPHATE, MONOBASIC
     Indication: Hypokalaemia
     Dosage: 1 LITER, QD (ALONG WITH NORMAL SALINE)
     Route: 065
     Dates: start: 20200117, end: 20200117
  43. POTASSIUM PHOSPHATES [Concomitant]
     Active Substance: POTASSIUM PHOSPHATE, DIBASIC\POTASSIUM PHOSPHATE, MONOBASIC
     Dosage: 1 LITER, QD (ALONG WITH NORMAL SALINE)
     Route: 065
     Dates: start: 20200118, end: 20200118
  44. POTASSIUM PHOSPHATES [Concomitant]
     Active Substance: POTASSIUM PHOSPHATE, DIBASIC\POTASSIUM PHOSPHATE, MONOBASIC
     Dosage: 1 LITER, QD (ALONG WITH NORMAL SALINE)
     Route: 065
     Dates: start: 20200119, end: 20200119
  45. CALCIUM CHLORIDE\POTASSIUM CHLORIDE\SODIUM CHLORIDE\SODIUM LACTATE [Concomitant]
     Active Substance: CALCIUM CHLORIDE\POTASSIUM CHLORIDE\SODIUM CHLORIDE\SODIUM LACTATE
     Indication: Hypotension
     Dosage: 1 LITER, BID
     Route: 065
     Dates: start: 20200116, end: 20200116
  46. CALCIUM CHLORIDE\POTASSIUM CHLORIDE\SODIUM CHLORIDE\SODIUM LACTATE [Concomitant]
     Active Substance: CALCIUM CHLORIDE\POTASSIUM CHLORIDE\SODIUM CHLORIDE\SODIUM LACTATE
     Dosage: 500 MILLILITER, QD
     Route: 065
     Dates: start: 20200116, end: 20200116
  47. CALCIUM CHLORIDE\POTASSIUM CHLORIDE\SODIUM CHLORIDE\SODIUM LACTATE [Concomitant]
     Active Substance: CALCIUM CHLORIDE\POTASSIUM CHLORIDE\SODIUM CHLORIDE\SODIUM LACTATE
     Dosage: 1000 MILLILITER, QD
     Route: 065
     Dates: start: 20200120, end: 20200120
  48. CALCIUM CHLORIDE\POTASSIUM CHLORIDE\SODIUM CHLORIDE\SODIUM LACTATE [Concomitant]
     Active Substance: CALCIUM CHLORIDE\POTASSIUM CHLORIDE\SODIUM CHLORIDE\SODIUM LACTATE
     Dosage: 1000 MILLILITER, BID
     Route: 065
     Dates: start: 20200121, end: 20200121
  49. CALCIUM GLUCONATE [Concomitant]
     Active Substance: CALCIUM GLUCONATE
     Indication: Hypocalcaemia
     Dosage: 10 MILLILITER, QD
     Dates: start: 20200117, end: 20200119
  50. CALCIUM GLUCONATE [Concomitant]
     Active Substance: CALCIUM GLUCONATE
     Dosage: 10 MILLILITER, QD
     Route: 065
     Dates: start: 20200120, end: 20200120
  51. CALCIUM GLUCONATE [Concomitant]
     Active Substance: CALCIUM GLUCONATE
     Dosage: 10 MILLILITER, QD
     Route: 065
     Dates: start: 20200121, end: 20200121
  52. GENTAMICIN [Concomitant]
     Active Substance: GENTAMICIN
     Indication: Prophylaxis
     Dosage: 400 MILLIGRAM; QD
     Route: 065
     Dates: start: 20200117, end: 20200118
  53. CALCIUM CARBONATE [Concomitant]
     Active Substance: CALCIUM CARBONATE
     Indication: Hypocalcaemia
     Dosage: 1 DOSAGE FORM, BID
     Route: 065
     Dates: start: 20200117, end: 20200119
  54. SODIUM CHLORIDE [Concomitant]
     Active Substance: SODIUM CHLORIDE
     Indication: Prophylaxis
     Dosage: 1 LITER, BID
     Dates: start: 20200117, end: 20200117
  55. SODIUM CHLORIDE [Concomitant]
     Active Substance: SODIUM CHLORIDE
     Dosage: 1 LITER, QD (WITH 40MMIOL POTASSIUM CHLORIDE)
     Route: 065
     Dates: start: 20200117, end: 20200117
  56. TRAMADOL [Concomitant]
     Active Substance: TRAMADOL
     Indication: Pain
     Dosage: 100 MILLIGRAM, QD
     Route: 065
     Dates: start: 20200120, end: 20200120
  57. MIDAZOLAM [Concomitant]
     Active Substance: MIDAZOLAM
     Indication: Agitation
     Dosage: 2.5 MILLIGRAM, PRN
     Route: 065
     Dates: start: 20200120, end: 20200122
  58. MIDAZOLAM [Concomitant]
     Active Substance: MIDAZOLAM
     Dosage: 10 MILLIGRAM, PRN
     Route: 065
     Dates: start: 20200120, end: 20200122
  59. MIDAZOLAM [Concomitant]
     Active Substance: MIDAZOLAM
     Dosage: 30 MILLIGRAM
     Route: 065
     Dates: start: 20200122, end: 20200122
  60. MIDAZOLAM [Concomitant]
     Active Substance: MIDAZOLAM
     Dosage: 5 MILLIGRAM, PRN
     Route: 065
     Dates: start: 20200122, end: 20200122
  61. MORPHINE SULFATE [Concomitant]
     Active Substance: MORPHINE SULFATE
     Indication: Pain
     Dosage: 2.5 MILLIGRAM, PRN
     Route: 058
     Dates: start: 20200120, end: 20200122
  62. MORPHINE SULFATE [Concomitant]
     Active Substance: MORPHINE SULFATE
     Dosage: 5 MILLIGRAM, BID
     Route: 065
     Dates: start: 20200120, end: 20200120
  63. MORPHINE SULFATE [Concomitant]
     Active Substance: MORPHINE SULFATE
     Dosage: 15 MILLIGRAM, CONTINUOUS FOR 24 HOURS
     Route: 058
     Dates: start: 20200121, end: 20200121
  64. MORPHINE SULFATE [Concomitant]
     Active Substance: MORPHINE SULFATE
     Dosage: 40 MILLIGRAM, CONTINUOUS
     Route: 058
     Dates: start: 20200122, end: 20200122
  65. FUROSEMIDE [Concomitant]
     Active Substance: FUROSEMIDE
     Indication: Oedema
     Dosage: 40 MG, QD
     Route: 065
     Dates: start: 20200120, end: 20200122
  66. MEROPENEM [Concomitant]
     Active Substance: MEROPENEM
     Indication: Prophylaxis
     Dosage: 1 GRAM, QD
     Route: 065
     Dates: start: 20200121, end: 20200122
  67. HALOPERIDOL [Concomitant]
     Active Substance: HALOPERIDOL
     Indication: Agitation
     Dosage: 2 MILLIGRAM, CONTINUOUS FOR 24 HOURS
     Route: 065
     Dates: start: 20200121, end: 20200121
  68. HALOPERIDOL [Concomitant]
     Active Substance: HALOPERIDOL
     Dosage: 1.5 MILLIGRAM, PRN
     Route: 065
     Dates: start: 20200121, end: 20200122
  69. LEVOMEPROMAZINE EMBONATE [Concomitant]
     Active Substance: LEVOMEPROMAZINE EMBONATE
     Indication: Agitation
     Dosage: 25 MG
     Route: 058
     Dates: start: 20200122, end: 20200122

REACTIONS (5)
  - Disseminated intravascular coagulation [Fatal]
  - Immune-mediated dermatitis [Recovered/Resolved]
  - Supraventricular tachycardia [Recovered/Resolved]
  - Anaemia [Not Recovered/Not Resolved]
  - Diarrhoea [Recovered/Resolved]

NARRATIVE: CASE EVENT DATE: 20200112
